FAERS Safety Report 17576345 (Version 1)
Quarter: 2020Q1

REPORT INFORMATION
  Report Type: Spontaneous
  Country: US (occurrence: US)
  Receive Date: 20200324
  Receipt Date: 20200324
  Transmission Date: 20200409
  Serious: Yes (Other)
  Sender: FDA-Public Use
  Company Number: None

PATIENT
  Age: 75 Year
  Sex: Male

DRUGS (4)
  1. ROSUVASTATIN. [Concomitant]
     Active Substance: ROSUVASTATIN
  2. TAMULOSIN [Concomitant]
     Active Substance: TAMSULOSIN
  3. GLEEVEC [Suspect]
     Active Substance: IMATINIB MESYLATE
     Indication: PROSTATE CANCER
     Route: 048
     Dates: start: 20190306
  4. OXYBUTRIN [Concomitant]
     Active Substance: OXYBUTYNIN

REACTIONS (5)
  - Internal haemorrhage [None]
  - Therapy cessation [None]
  - Malaise [None]
  - Diarrhoea [None]
  - Anxiety [None]
